FAERS Safety Report 14599147 (Version 1)
Quarter: 2018Q1

REPORT INFORMATION
  Report Type: Spontaneous
  Country: US (occurrence: US)
  Receive Date: 20180305
  Receipt Date: 20180305
  Transmission Date: 20180509
  Serious: No
  Sender: FDA-Public Use
  Company Number: US-009507513-1802USA007561

PATIENT
  Sex: Female
  Weight: 113 kg

DRUGS (1)
  1. ETONOGESTREL IMPLANT- UNKNOWN [Suspect]
     Active Substance: ETONOGESTREL
     Dosage: 1 DF, LEFT ARM
     Route: 059
     Dates: start: 201509, end: 20180118

REACTIONS (6)
  - Vaginal haemorrhage [Unknown]
  - Complication associated with device [Recovered/Resolved]
  - Device difficult to use [Recovered/Resolved]
  - Mood altered [Unknown]
  - Implant site scar [Unknown]
  - Complication of device removal [Recovered/Resolved]
